FAERS Safety Report 23751566 (Version 1)
Quarter: 2024Q2

REPORT INFORMATION
  Report Type: Spontaneous
  Country: CA (occurrence: CA)
  Receive Date: 20240417
  Receipt Date: 20240417
  Transmission Date: 20240716
  Serious: Yes (Other)
  Sender: FDA-Public Use
  Company Number: CA-PFIZER INC-202400088778

PATIENT
  Age: 63 Year
  Sex: Female

DRUGS (5)
  1. METHOTREXATE SODIUM [Suspect]
     Active Substance: METHOTREXATE SODIUM
     Dosage: 1 EVERY 6 MONTHS
     Route: 065
  2. SULFASALAZINE [Suspect]
     Active Substance: SULFASALAZINE
     Dosage: 1 EVERY 6 MONTHS
     Route: 065
  3. REMICADE [Suspect]
     Active Substance: INFLIXIMAB
     Route: 041
  4. ANAKINRA [Concomitant]
     Active Substance: ANAKINRA
     Dosage: 1 EVERY 6 MONTHS
  5. GOLD [Concomitant]
     Active Substance: GOLD
     Dosage: 1 EVERY 6 MONTHS

REACTIONS (2)
  - Anaphylactic reaction [Unknown]
  - Off label use [Unknown]
